FAERS Safety Report 4879593-6 (Version None)
Quarter: 2006Q1

REPORT INFORMATION
  Report Type: 
  Country: None (occurrence: None)
  Receive Date: 20060113
  Receipt Date: 20050415
  Transmission Date: 20060701
  Serious: Yes (Other)
  Sender: FDA-Public Use
  Company Number: US-BRISTOL-MYERS SQUIBB COMPANY-12934378

PATIENT

DRUGS (1)
  1. CISPLATIN [Suspect]
     Route: 042

REACTIONS (1)
  - LEUKOPENIA [None]
